FAERS Safety Report 18792393 (Version 2)
Quarter: 2021Q1

REPORT INFORMATION
  Report Type: Spontaneous
  Country: US (occurrence: US)
  Receive Date: 20210127
  Receipt Date: 20210211
  Transmission Date: 20210419
  Serious: No
  Sender: FDA-Public Use
  Company Number: US-009507513-2101USA009603

PATIENT
  Age: 31 Year
  Sex: Male

DRUGS (5)
  1. VITAMIN D (UNSPECIFIED) [Concomitant]
     Active Substance: VITAMIN D NOS
     Dosage: UNK
     Route: 048
  2. REMERON [Suspect]
     Active Substance: MIRTAZAPINE
     Indication: INSOMNIA
     Dosage: UNK
     Route: 048
     Dates: start: 202003
  3. REMERON [Suspect]
     Active Substance: MIRTAZAPINE
     Indication: ANXIETY
     Dosage: 15 MILLIGRAM, QD
     Route: 048
     Dates: start: 202007, end: 20201204
  4. REMERON [Suspect]
     Active Substance: MIRTAZAPINE
     Dosage: 22.5 MILLIGRAM, DAILY (QD)
     Route: 048
     Dates: start: 20201205
  5. REMERON [Suspect]
     Active Substance: MIRTAZAPINE
     Dosage: 15 MILLIGRAM, QD
     Route: 048
     Dates: start: 20210118, end: 20210118

REACTIONS (7)
  - Poor quality sleep [Not Recovered/Not Resolved]
  - Gastrointestinal disorder [Recovering/Resolving]
  - Anxiety [Not Recovered/Not Resolved]
  - Feeling abnormal [Recovering/Resolving]
  - Withdrawal syndrome [Recovering/Resolving]
  - Poor quality sleep [Recovering/Resolving]
  - Product use in unapproved indication [Unknown]

NARRATIVE: CASE EVENT DATE: 202003
